FAERS Safety Report 19839512 (Version 1)
Quarter: 2021Q3

REPORT INFORMATION
  Report Type: Report from Study
  Country: US (occurrence: US)
  Receive Date: 20210916
  Receipt Date: 20210916
  Transmission Date: 20211014
  Serious: Yes (Other)
  Sender: FDA-Public Use
  Company Number: US-ALS-000403

PATIENT
  Age: 59 Year
  Sex: Female

DRUGS (3)
  1. RITONAVIR. [Suspect]
     Active Substance: RITONAVIR
     Indication: PLASMA CELL MYELOMA
     Dosage: TWICE DAILY (2 WEEKS)
     Route: 065
  2. METFORMIN [Suspect]
     Active Substance: METFORMIN HYDROCHLORIDE
     Indication: PRODUCT USE IN UNAPPROVED INDICATION
     Dosage: FOR REMAINING FOUR DAYS (FOR 2 WEEKS )
     Route: 065
  3. METFORMIN [Suspect]
     Active Substance: METFORMIN HYDROCHLORIDE
     Indication: PRODUCT USE IN UNAPPROVED INDICATION
     Dosage: TWICE DAILY FOR THE FIRST THREE DAYS (FOR 2 WEEKS )
     Route: 065

REACTIONS (6)
  - Hyponatraemia [Unknown]
  - Lactic acidosis [Unknown]
  - Hypomagnesaemia [Unknown]
  - Disease progression [Unknown]
  - Product use in unapproved indication [Unknown]
  - Acute kidney injury [Unknown]
